FAERS Safety Report 10239137 (Version 1)
Quarter: 2014Q2

REPORT INFORMATION
  Report Type: Spontaneous
  Country: FR (occurrence: FR)
  Receive Date: 20140616
  Receipt Date: 20140616
  Transmission Date: 20141212
  Serious: Yes (Other)
  Sender: FDA-Public Use
  Company Number: FR-TEVA-486997ISR

PATIENT
  Age: 50 Year
  Sex: Male

DRUGS (1)
  1. COPAXONE [Suspect]
     Dosage: WITH THE AUTOJECT AT 10 MM
     Route: 058
     Dates: start: 2009

REACTIONS (6)
  - Optic nerve injury [Not Recovered/Not Resolved]
  - Visual impairment [Not Recovered/Not Resolved]
  - Postictal paralysis [Not Recovered/Not Resolved]
  - Memory impairment [Not Recovered/Not Resolved]
  - Injection site pain [Recovered/Resolved]
  - Hyperaesthesia [Not Recovered/Not Resolved]
